FAERS Safety Report 9044960 (Version 1)
Quarter: 2013Q1

REPORT INFORMATION
  Report Type: Report from Study
  Country: US (occurrence: US)
  Receive Date: 20130130
  Receipt Date: 20130130
  Transmission Date: 20140127
  Serious: No
  Sender: FDA-Public Use
  Company Number: US-ABBOTT-12P-163-0965860-00

PATIENT
  Age: 47 Year
  Sex: Male

DRUGS (5)
  1. HUMIRA 40 MG/0.8 ML PEN [Suspect]
     Indication: PSORIASIS
     Dates: start: 201205
  2. ALBUTEROL [Concomitant]
     Indication: ASTHMA
     Route: 055
  3. GEODON [Concomitant]
     Indication: DEPRESSION
  4. TRAMADOL [Concomitant]
     Indication: BACK PAIN
  5. CANNABIS SATIVA SUBSP. INDICA TOP [Concomitant]
     Indication: PAIN MANAGEMENT

REACTIONS (2)
  - Psoriasis [Not Recovered/Not Resolved]
  - Drug ineffective [Not Recovered/Not Resolved]
